FAERS Safety Report 10551663 (Version 1)
Quarter: 2014Q4

REPORT INFORMATION
  Report Type: Spontaneous
  Country: US (occurrence: None)
  Receive Date: 20141027
  Receipt Date: 20141027
  Transmission Date: 20150529
  Serious: Yes (Hospitalization)
  Sender: FDA-Public Use
  Company Number: KAD201410-001321

PATIENT
  Age: 49 Year
  Sex: Male

DRUGS (4)
  1. GS-7977 [Suspect]
     Active Substance: SOFOSBUVIR
     Route: 048
  2. TACROLIMUS (TACROLIMUS) [Concomitant]
     Active Substance: TACROLIMUS
  3. RIBAVIRIN (RIBAVIRIN) [Suspect]
     Active Substance: RIBAVIRIN
     Route: 048
  4. PEGYLATED INTERFERON NOS [Suspect]
     Active Substance: PEGINTERFERON ALFA-2A OR PEGINTERFERON ALFA-2B OR PEGINTERFERON BETA-1A OR PEGINTERFERON LAMBDA-1A
     Route: 058

REACTIONS (2)
  - Chest pain [None]
  - Anaemia [None]

NARRATIVE: CASE EVENT DATE: 20130620
